FAERS Safety Report 9715192 (Version 1)
Quarter: 2013Q4

REPORT INFORMATION
  Report Type: Spontaneous
  Country: AU (occurrence: AU)
  Receive Date: 20131126
  Receipt Date: 20131126
  Transmission Date: 20140711
  Serious: Yes (Hospitalization)
  Sender: FDA-Public Use
  Company Number: AU-ABBVIE-13P-008-1170371-00

PATIENT
  Sex: Male

DRUGS (3)
  1. LUCRIN DEPOT [Suspect]
     Indication: PRODUCT USED FOR UNKNOWN INDICATION
  2. BYETTA [Suspect]
     Indication: TYPE 2 DIABETES MELLITUS
  3. BYETTA [Suspect]

REACTIONS (2)
  - Hypophagia [Recovered/Resolved]
  - Nausea [Recovered/Resolved]
